FAERS Safety Report 19432431 (Version 2)
Quarter: 2021Q2

REPORT INFORMATION
  Report Type: Report from Study
  Country: CA (occurrence: CA)
  Receive Date: 20210617
  Receipt Date: 20210622
  Transmission Date: 20210717
  Serious: Yes (Hospitalization)
  Sender: FDA-Public Use
  Company Number: CA-OTSUKA-2021_020112

PATIENT
  Age: 61 Year
  Sex: Male
  Weight: 84.5 kg

DRUGS (9)
  1. CURCUMIN [Concomitant]
     Active Substance: CURCUMIN
     Indication: SUPPLEMENTATION THERAPY
     Dosage: 1500 MG
     Route: 048
     Dates: start: 201409
  2. ASPIRIN [ACETYLSALICYLIC ACID] [Concomitant]
     Active Substance: ASPIRIN
     Indication: THROMBOSIS
     Dosage: 81 MG, QD
     Route: 048
     Dates: start: 201409
  3. CHOLESTYRAMINE. [Concomitant]
     Active Substance: CHOLESTYRAMINE
     Dosage: 0.5 DF, QD
     Route: 048
     Dates: start: 20160830
  4. MELPHALAN. [Suspect]
     Active Substance: MELPHALAN
     Indication: AUTOLOGOUS HAEMATOPOIETIC STEM CELL TRANSPLANT
     Dosage: 294 MG ONCE
     Route: 042
     Dates: start: 20140329, end: 20140329
  5. BUSULFAN. [Suspect]
     Active Substance: BUSULFAN
     Indication: AUTOLOGOUS HAEMATOPOIETIC STEM CELL TRANSPLANT
     Dosage: 267.7 MG, QD
     Route: 042
     Dates: start: 20140326, end: 20140328
  6. LENALIDOMIDE [Suspect]
     Active Substance: LENALIDOMIDE
     Indication: AUTOLOGOUS HAEMATOPOIETIC STEM CELL TRANSPLANT
     Dosage: 5 MG OD
     Route: 048
     Dates: start: 20140709, end: 20181127
  7. VITAMIN D [COLECALCIFEROL] [Concomitant]
     Active Substance: CHOLECALCIFEROL
     Indication: SUPPLEMENTATION THERAPY
     Dosage: 1000 IU, QD
     Route: 048
     Dates: start: 201504
  8. CHOLESTYRAMINE. [Concomitant]
     Active Substance: CHOLESTYRAMINE
     Indication: PROPHYLAXIS AGAINST DIARRHOEA
     Dosage: 1 DF, QD
     Route: 048
     Dates: start: 20160830
  9. VITAMIN B12 [Concomitant]
     Active Substance: CYANOCOBALAMIN
     Indication: VITAMIN B12 DEFICIENCY
     Dosage: 100 MG, QD
     Route: 048
     Dates: start: 2009

REACTIONS (1)
  - Acute lymphocytic leukaemia [Not Recovered/Not Resolved]

NARRATIVE: CASE EVENT DATE: 20210606
